FAERS Safety Report 19114857 (Version 1)
Quarter: 2021Q2

REPORT INFORMATION
  Report Type: Spontaneous
  Country: US (occurrence: US)
  Receive Date: 20210409
  Receipt Date: 20210409
  Transmission Date: 20210717
  Serious: Yes (Other)
  Sender: FDA-Public Use
  Company Number: US-STRIDES ARCOLAB LIMITED-2021SP004117

PATIENT
  Sex: Female
  Weight: 47.62 kg

DRUGS (2)
  1. TACROLIMUS CAPSULES 1 MG [Suspect]
     Active Substance: TACROLIMUS
     Indication: LIVER TRANSPLANT
     Dosage: 2 MILLIGRAM, BID (2 CAPSULES) FOR 15 MONTHS IN DIFFERENT DOSAGE FORMS
     Route: 065
     Dates: start: 2021
  2. PREDNISONE. [Concomitant]
     Active Substance: PREDNISONE
     Indication: LIVER TRANSPLANT
     Dosage: UNK, REDUCED DOSE
     Route: 065

REACTIONS (2)
  - Condition aggravated [Unknown]
  - Coeliac disease [Unknown]
